FAERS Safety Report 8273636-8 (Version None)
Quarter: 2012Q2

REPORT INFORMATION
  Report Type: 
  Country: None (occurrence: None)
  Receive Date: 20120411
  Receipt Date: 20120211
  Transmission Date: 20120825
  Serious: No
  Sender: FDA-Public Use
  Company Number: US-TEVA-322376USA

PATIENT
  Sex: Female
  Weight: 72.64 kg

DRUGS (10)
  1. ACETYLSALICYLIC ACID SRT [Concomitant]
     Dosage: 23.1429 MILLIGRAM;
     Route: 048
  2. HYDROCHLOROTHIAZIDE [Concomitant]
     Route: 048
  3. ALENDRONATE SODIUM [Concomitant]
     Route: 048
  4. WARFARIN SODIUM [Concomitant]
     Route: 048
  5. SIMVASTATIN [Concomitant]
     Route: 048
  6. NUVIGIL [Suspect]
     Indication: FATIGUE
     Dosage: 150 MILLIGRAM;
     Route: 048
     Dates: start: 20120210
  7. TELMISARTAN [Concomitant]
     Dosage: 80 MILLIGRAM;
     Route: 048
  8. FELODIPINE [Concomitant]
     Route: 048
  9. CALCIUM CARBONATE [Concomitant]
     Route: 048
  10. ESOMEPRAZOLE MAGNESIUM [Concomitant]
     Route: 048

REACTIONS (1)
  - INITIAL INSOMNIA [None]
